FAERS Safety Report 9194064 (Version 1)
Quarter: 2013Q1

REPORT INFORMATION
  Report Type: Spontaneous
  Country: FR (occurrence: FR)
  Receive Date: 20130327
  Receipt Date: 20130327
  Transmission Date: 20140127
  Serious: Yes (Other)
  Sender: FDA-Public Use
  Company Number: FR-PFIZER INC-2013092496

PATIENT
  Age: 78 Year
  Sex: Female

DRUGS (10)
  1. REVATIO [Suspect]
     Indication: PULMONARY HYPERTENSION
     Dosage: UNK
     Route: 048
  2. REVATIO [Suspect]
     Indication: SCLERODERMA
  3. METFORMIN HCL [Suspect]
     Indication: TYPE 2 DIABETES MELLITUS
     Dosage: UNK
     Route: 048
  4. TRACLEER [Suspect]
     Indication: PULMONARY ARTERIAL HYPERTENSION
     Dosage: UNK
     Route: 048
  5. TRACLEER [Suspect]
     Indication: SCLERODERMA
  6. LEVOTHYROX [Suspect]
     Indication: HYPOTHYROIDISM
     Dosage: UNK
     Route: 048
  7. LASILIX [Suspect]
     Indication: PULMONARY HYPERTENSION
     Dosage: UNK
     Route: 048
  8. PREVISCAN [Suspect]
     Indication: PULMONARY HYPERTENSION
     Dosage: UNK
     Route: 048
  9. VENTAVIS [Suspect]
     Indication: PULMONARY ARTERIAL HYPERTENSION
     Dosage: UNK
     Route: 048
     Dates: start: 201109
  10. VENTAVIS [Suspect]
     Indication: SCLERODERMA

REACTIONS (2)
  - Eosinophilia [Not Recovered/Not Resolved]
  - Limb injury [Unknown]
